FAERS Safety Report 18118314 (Version 1)
Quarter: 2020Q3

REPORT INFORMATION
  Report Type: Spontaneous
  Country: GB (occurrence: GB)
  Receive Date: 20200806
  Receipt Date: 20200806
  Transmission Date: 20201103
  Serious: Yes (Disabling)
  Sender: FDA-Public Use
  Company Number: None

PATIENT
  Age: 32 Year
  Sex: Male
  Weight: 38.25 kg

DRUGS (4)
  1. RIFAMPICIN [Concomitant]
     Active Substance: RIFAMPIN
  2. CIPROFLOXACIN. [Suspect]
     Active Substance: CIPROFLOXACIN
     Indication: URINARY TRACT INFECTION
     Route: 048
  3. LYMECYCLINE [Concomitant]
     Active Substance: LYMECYCLINE
  4. TUMERIC [Concomitant]
     Active Substance: HERBALS\TURMERIC

REACTIONS (10)
  - Muscular weakness [None]
  - Back pain [None]
  - Muscle spasms [None]
  - Impaired quality of life [None]
  - Neuralgia [None]
  - Headache [None]
  - Tinnitus [None]
  - Paraesthesia [None]
  - Anxiety [None]
  - Musculoskeletal stiffness [None]

NARRATIVE: CASE EVENT DATE: 20200115
